FAERS Safety Report 24066376 (Version 2)
Quarter: 2024Q3

REPORT INFORMATION
  Report Type: Spontaneous
  Country: TR (occurrence: TR)
  Receive Date: 20240709
  Receipt Date: 20240809
  Transmission Date: 20241017
  Serious: Yes (Life-Threatening, Other)
  Sender: PFIZER
  Company Number: TR-PFIZER INC-PV202400087922

PATIENT
  Age: 50 Year
  Sex: Male

DRUGS (11)
  1. CISPLATIN [Suspect]
     Active Substance: CISPLATIN
     Indication: Primary effusion lymphoma
     Dosage: 2 CYCLES
     Dates: start: 202005
  2. METHYLPREDNISOLONE ACETATE [Suspect]
     Active Substance: METHYLPREDNISOLONE ACETATE
     Indication: Primary effusion lymphoma
     Dosage: 4 TREATMENT CYCLES
     Dates: start: 2019
  3. CARBOPLATIN [Suspect]
     Active Substance: CARBOPLATIN
     Indication: Primary effusion lymphoma
     Dosage: UNK, CYCLIC
     Dates: start: 201909
  4. CYTARABINE [Suspect]
     Active Substance: CYTARABINE
     Dosage: 2 CYCLES
     Dates: start: 202005
  5. CYCLOPHOSPHAMIDE [Suspect]
     Active Substance: CYCLOPHOSPHAMIDE
     Indication: Primary effusion lymphoma
     Dosage: AFTER 4 TREATMENT CYCLES
     Dates: start: 2019
  6. ADRIAMYCIN [Suspect]
     Active Substance: DOXORUBICIN HYDROCHLORIDE
     Indication: Primary effusion lymphoma
     Dosage: AFTER 4 TREATMENT CYCLES
     Dates: start: 2019
  7. VINCRISTINE [Suspect]
     Active Substance: VINCRISTINE
     Indication: Primary effusion lymphoma
     Dosage: AFTER 4 TREATMENT CYCLES
     Dates: start: 2019
  8. IFOSFAMIDE [Suspect]
     Active Substance: IFOSFAMIDE
     Indication: Primary effusion lymphoma
     Dosage: 3 CYCLES
     Dates: start: 201909
  9. MESNA [Suspect]
     Active Substance: MESNA
     Indication: Primary effusion lymphoma
     Dosage: 3 CYCLES
     Dates: start: 201909
  10. ETOPOSIDE [Suspect]
     Active Substance: ETOPOSIDE
     Indication: Primary effusion lymphoma
     Dosage: 3 CYCLES
     Dates: start: 201909
  11. DEXAMETHASONE [Suspect]
     Active Substance: DEXAMETHASONE
     Indication: Primary effusion lymphoma
     Dosage: 2 CYCLES
     Dates: start: 202005

REACTIONS (2)
  - Drug ineffective for unapproved indication [Unknown]
  - Off label use [Unknown]
